FAERS Safety Report 11654208 (Version 3)
Quarter: 2016Q2

REPORT INFORMATION
  Report Type: Spontaneous
  Country: US (occurrence: US)
  Receive Date: 20151023
  Receipt Date: 20160414
  Transmission Date: 20160815
  Serious: Yes (Other)
  Sender: FDA-Public Use
  Company Number: US-AUROBINDO-AUR-APL-2015-09466

PATIENT
  Age: 65 Year
  Sex: Female

DRUGS (1)
  1. RIBAVIRIN. [Suspect]
     Active Substance: RIBAVIRIN
     Indication: HEPATITIS C
     Dosage: 1000 MG, WEIGHT-BASED 1000 MG
     Route: 065

REACTIONS (6)
  - Blood immunoglobulin G increased [Recovering/Resolving]
  - Immunoglobulins increased [Recovering/Resolving]
  - Fatigue [Recovering/Resolving]
  - Asthenia [Recovering/Resolving]
  - Autoimmune hepatitis [Recovering/Resolving]
  - Liver function test increased [Recovering/Resolving]
